FAERS Safety Report 12136013 (Version 2)
Quarter: 2016Q2

REPORT INFORMATION
  Report Type: Spontaneous
  Country: US (occurrence: US)
  Receive Date: 20160302
  Receipt Date: 20160517
  Transmission Date: 20160815
  Serious: Yes (Hospitalization)
  Sender: FDA-Public Use
  Company Number: US-ELI_LILLY_AND_COMPANY-US201602005661

PATIENT
  Age: 73 Year
  Sex: Female

DRUGS (2)
  1. FORTEO [Suspect]
     Active Substance: TERIPARATIDE
     Indication: OSTEOPOROSIS
     Dosage: 20 UG, QD
     Route: 065
     Dates: start: 20150915
  2. TOPRIL                             /00498401/ [Concomitant]

REACTIONS (5)
  - Fall [Unknown]
  - Neck pain [Unknown]
  - Muscle spasms [Unknown]
  - Knee deformity [Unknown]
  - Arthralgia [Unknown]

NARRATIVE: CASE EVENT DATE: 20160115
